FAERS Safety Report 6471923-7 (Version None)
Quarter: 2009Q4

REPORT INFORMATION
  Report Type: 
  Country: None (occurrence: None)
  Receive Date: 20091119
  Receipt Date: 20090812
  Transmission Date: 20100525
  Serious: No
  Sender: FDA-Public Use
  Company Number: WAES 0908USA01899

PATIENT
  Age: 81 Year
  Sex: Female

DRUGS (7)
  1. JANUVIA [Suspect]
     Indication: DIABETES MELLITUS
     Dosage: 25 MG/DAILY/PO
     Route: 048
     Dates: start: 20090701
  2. AMBIEN [Concomitant]
  3. KLOR-CON [Concomitant]
  4. LASIX [Concomitant]
  5. LIPITOR [Concomitant]
  6. VALTREX [Concomitant]
  7. WARFARIN SODIUM [Concomitant]

REACTIONS (1)
  - DRUG INEFFECTIVE [None]
